FAERS Safety Report 7559619-1 (Version None)
Quarter: 2011Q2

REPORT INFORMATION
  Report Type: 
  Country: None (occurrence: None)
  Receive Date: 20110621
  Receipt Date: 20110602
  Transmission Date: 20111010
  Serious: Yes (Other)
  Sender: FDA-Public Use
  Company Number: BR-JNJFOC-20110603032

PATIENT
  Sex: Male
  Weight: 43 kg

DRUGS (1)
  1. REMICADE [Suspect]
     Indication: CROHN'S DISEASE
     Route: 042
     Dates: start: 20110530, end: 20110530

REACTIONS (4)
  - INFUSION RELATED REACTION [None]
  - ERYTHEMA [None]
  - DYSPNOEA [None]
  - DYSPHAGIA [None]
